FAERS Safety Report 8212223-4 (Version None)
Quarter: 2012Q1

REPORT INFORMATION
  Report Type: 
  Country: None (occurrence: None)
  Receive Date: 20120315
  Receipt Date: 20120307
  Transmission Date: 20120608
  Serious: Yes (Hospitalization, Other)
  Sender: FDA-Public Use
  Company Number: US-BAXTER-2012BH005642

PATIENT
  Sex: Male

DRUGS (3)
  1. COCAINE [Suspect]
     Indication: PRODUCT USED FOR UNKNOWN INDICATION
     Route: 065
     Dates: start: 20120224
  2. DIANEAL [Suspect]
     Indication: PERITONEAL DIALYSIS
     Route: 033
  3. DIANEAL [Suspect]
     Indication: PERITONEAL DIALYSIS
     Route: 033

REACTIONS (7)
  - CEREBROVASCULAR ACCIDENT [None]
  - CONVULSION [None]
  - CARDIAC ARREST [None]
  - ARRHYTHMIA [None]
  - VENTRICULAR TACHYCARDIA [None]
  - CHEST PAIN [None]
  - DYSPNOEA [None]
